FAERS Safety Report 11054725 (Version 1)
Quarter: 2015Q2

REPORT INFORMATION
  Report Type: Spontaneous
  Country: CN (occurrence: None)
  Receive Date: 20150420
  Receipt Date: 20150420
  Transmission Date: 20150821
  Serious: Yes (Life-Threatening, Hospitalization, Other)
  Sender: FDA-Public Use
  Company Number: CN-2015VAL000256

PATIENT
  Age: 64 Year
  Sex: Female
  Weight: 50 kg

DRUGS (6)
  1. DIGOXIN. [Concomitant]
     Active Substance: DIGOXIN
  2. IMDUR (ISOSORBIDE MONONITRATE) [Concomitant]
  3. TALCOM (CLOPIDOGREL BISULFATE) [Concomitant]
  4. SPIRONOLACTONE (SPIRONOLACTONE) [Suspect]
     Active Substance: SPIRONOLACTONE
     Indication: HYPERTENSION
     Route: 048
     Dates: start: 20140225, end: 20141215
  5. HYDROCHLOROTHIAZIDE. [Concomitant]
     Active Substance: HYDROCHLOROTHIAZIDE
  6. LOTENSIN [Suspect]
     Active Substance: BENAZEPRIL HYDROCHLORIDE
     Indication: HYPERTENSION
     Route: 048
     Dates: start: 20140225, end: 20141215

REACTIONS (10)
  - Blood creatinine increased [None]
  - Cardio-respiratory arrest [None]
  - Depressed level of consciousness [None]
  - Chest discomfort [None]
  - Hyperkalaemia [None]
  - Asthenia [None]
  - Cyanosis [None]
  - Blood sodium decreased [None]
  - Blood urea increased [None]
  - Chills [None]

NARRATIVE: CASE EVENT DATE: 20141215
